FAERS Safety Report 7679583-4 (Version None)
Quarter: 2011Q3

REPORT INFORMATION
  Report Type: 
  Country: None (occurrence: None)
  Receive Date: 20110812
  Receipt Date: 20110729
  Transmission Date: 20111222
  Serious: Yes (Hospitalization)
  Sender: FDA-Public Use
  Company Number: DK-MYLANLABS-2011S1016342

PATIENT
  Age: 65 Year
  Sex: Female
  Weight: 70 kg

DRUGS (2)
  1. SERTRALINE HYDROCHLORIDE [Suspect]
     Indication: DEPRESSED MOOD
     Route: 048
     Dates: start: 20060815, end: 20061228
  2. SERTRALINE HYDROCHLORIDE [Suspect]
     Route: 048
     Dates: start: 20060815, end: 20061228

REACTIONS (37)
  - BLOOD URIC ACID INCREASED [None]
  - FLUID RETENTION [None]
  - COORDINATION ABNORMAL [None]
  - DYSGRAPHIA [None]
  - ARRHYTHMIA [None]
  - APATHY [None]
  - MUSCULOSKELETAL STIFFNESS [None]
  - ABNORMAL BEHAVIOUR [None]
  - HYPOPITUITARISM [None]
  - QUALITY OF LIFE DECREASED [None]
  - AGGRESSION [None]
  - DRY MOUTH [None]
  - PERIODONTAL DISEASE [None]
  - PERSONALITY CHANGE [None]
  - SEROTONIN SYNDROME [None]
  - SUICIDAL IDEATION [None]
  - FALL [None]
  - PARKINSONISM [None]
  - CONSTIPATION [None]
  - TOXICITY TO VARIOUS AGENTS [None]
  - PARAESTHESIA [None]
  - COGNITIVE DISORDER [None]
  - RENAL IMPAIRMENT [None]
  - BRAIN INJURY [None]
  - TOOTH LOSS [None]
  - BLINDNESS [None]
  - WEIGHT INCREASED [None]
  - PARESIS [None]
  - HYPERHIDROSIS [None]
  - NEUROLOGICAL SYMPTOM [None]
  - GAIT DISTURBANCE [None]
  - DYSARTHRIA [None]
  - FEELING ABNORMAL [None]
  - ALOPECIA [None]
  - HYPERPARATHYROIDISM [None]
  - MANIA [None]
  - DEPRESSION [None]
